FAERS Safety Report 5746258-8 (Version None)
Quarter: 2008Q2

REPORT INFORMATION
  Report Type: 
  Country: None (occurrence: None)
  Receive Date: 20080522
  Receipt Date: 20080516
  Transmission Date: 20081010
  Serious: Yes (Other)
  Sender: FDA-Public Use
  Company Number: JP-BRISTOL-MYERS SQUIBB COMPANY-14198907

PATIENT
  Age: 75 Year
  Sex: Female

DRUGS (6)
  1. MEVALOTIN [Suspect]
     Indication: HYPERCHOLESTEROLAEMIA
     Route: 048
     Dates: start: 20080118, end: 20080425
  2. AMARYL [Suspect]
  3. BASEN [Suspect]
  4. TAKEPRON [Concomitant]
  5. ASPIRIN [Concomitant]
  6. HERBAL MIXTURE [Concomitant]

REACTIONS (1)
  - PLATELET COUNT DECREASED [None]
